FAERS Safety Report 9858210 (Version 1)
Quarter: 2014Q1

REPORT INFORMATION
  Report Type: Spontaneous
  Country: US (occurrence: US)
  Receive Date: 20140131
  Receipt Date: 20140131
  Transmission Date: 20141002
  Serious: Yes (Other)
  Sender: FDA-Public Use
  Company Number: US-PAR PHARMACEUTICAL, INC-2014SCPR008881

PATIENT
  Sex: 0

DRUGS (2)
  1. FENTANYL CITRATE [Suspect]
     Indication: NEURALGIA
     Dosage: UNK, UNKNOWN
     Route: 048
  2. NARCOTICS [Concomitant]
     Indication: NEURALGIA
     Dosage: UNK, UNKNOWN
     Route: 065

REACTIONS (6)
  - Off label use [Unknown]
  - Quality of life decreased [Unknown]
  - Withdrawal syndrome [Unknown]
  - Pain [Unknown]
  - Tremor [Unknown]
  - Dyspnoea [Unknown]
